FAERS Safety Report 7215756-2 (Version None)
Quarter: 2011Q1

REPORT INFORMATION
  Report Type: 
  Country: None (occurrence: None)
  Receive Date: 20110107
  Receipt Date: 20110104
  Transmission Date: 20110831
  Serious: Yes (Life-Threatening, Hospitalization)
  Sender: FDA-Public Use
  Company Number: FR-ASTRAZENECA-2011SE00479

PATIENT
  Age: 30313 Day
  Sex: Female

DRUGS (10)
  1. OLMETEC [Concomitant]
  2. KEPPRA [Concomitant]
  3. METEOSPASMYL [Concomitant]
  4. DAFLON [Concomitant]
  5. DAFALGAN [Concomitant]
  6. IDEOS [Concomitant]
  7. DIPRIVAN [Suspect]
     Indication: ANAESTHESIA
     Dosage: ONCE/SINGLE ADMINISTRATION
     Route: 042
     Dates: start: 20101206, end: 20101206
  8. QUESTRAN [Concomitant]
  9. SUCCINYLCHOLINE CHLORIDE [Suspect]
     Indication: ANAESTHESIA
     Dosage: ONCE/SINGLE ADMINISTRATION
     Route: 042
     Dates: start: 20101206, end: 20101206
  10. NOCTAMIDE [Concomitant]

REACTIONS (2)
  - ANAPHYLACTIC SHOCK [None]
  - CARDIAC ARREST [None]
